FAERS Safety Report 10922549 (Version 1)
Quarter: 2015Q1

REPORT INFORMATION
  Report Type: Spontaneous
  Country: US (occurrence: None)
  Receive Date: 20150313
  Receipt Date: 20150313
  Transmission Date: 20150721
  Serious: Yes (Death, Hospitalization, Other)
  Sender: FDA-Public Use
  Company Number: 2015JUB00067

PATIENT
  Age: 61 Year
  Sex: Female

DRUGS (1)
  1. PREDNISONE (PREDNISONE) UNKNOWN [Suspect]
     Active Substance: PREDNISONE
     Indication: RHEUMATOID ARTHRITIS

REACTIONS (9)
  - Hyperferritinaemia [None]
  - Cushingoid [None]
  - Shock [None]
  - Histiocytosis haematophagic [None]
  - Multi-organ failure [None]
  - Lipomatosis [None]
  - Generalised oedema [None]
  - Febrile neutropenia [None]
  - Hypofibrinogenaemia [None]
